FAERS Safety Report 13069225 (Version 1)
Quarter: 2016Q4

REPORT INFORMATION
  Report Type: Spontaneous
  Country: US (occurrence: US)
  Receive Date: 20161228
  Receipt Date: 20161228
  Transmission Date: 20170207
  Serious: No
  Sender: FDA-Public Use
  Company Number: US-PFIZER INC-2016597740

PATIENT
  Age: 68 Year
  Sex: Female

DRUGS (2)
  1. PROMETHAZINE HCL [Suspect]
     Active Substance: PROMETHAZINE HYDROCHLORIDE
     Indication: NAUSEA
     Dosage: EVERY 4 TO 6 HOURS
  2. PROMETHAZINE HCL [Suspect]
     Active Substance: PROMETHAZINE HYDROCHLORIDE
     Dosage: 25 MG, AS NEEDED SOMETIMES DON NOT TAKE IT FOR 2 OR 3 WEEKS

REACTIONS (3)
  - Irritability [Unknown]
  - Fatigue [Unknown]
  - Somnolence [Unknown]
